FAERS Safety Report 5341226-2 (Version None)
Quarter: 2007Q2

REPORT INFORMATION
  Report Type: 
  Country: None (occurrence: None)
  Receive Date: 20070404
  Receipt Date: 20070119
  Transmission Date: 20071010
  Serious: Yes (Other)
  Sender: FDA-Public Use
  Company Number: 2007019749

PATIENT

DRUGS (1)
  1. GEODON [Suspect]
     Dosage: 120 MG

REACTIONS (1)
  - MANIA [None]
